FAERS Safety Report 19207476 (Version 4)
Quarter: 2021Q4

REPORT INFORMATION
  Report Type: Spontaneous
  Country: US (occurrence: US)
  Receive Date: 20210503
  Receipt Date: 20211202
  Transmission Date: 20220303
  Serious: No
  Sender: FDA-Public Use
  Company Number: NVSC2021US099474

PATIENT
  Sex: Male

DRUGS (3)
  1. MEKINIST [Suspect]
     Active Substance: TRAMETINIB DIMETHYL SULFOXIDE
     Indication: Pancreatic carcinoma
     Dosage: 0.2 MG, QD
     Route: 065
     Dates: start: 20210331
  2. MEKINIST [Suspect]
     Active Substance: TRAMETINIB DIMETHYL SULFOXIDE
     Indication: Metastases to peritoneum
  3. MEKINIST [Suspect]
     Active Substance: TRAMETINIB DIMETHYL SULFOXIDE
     Indication: Neoplasm malignant

REACTIONS (5)
  - Acne [Unknown]
  - Rash [Unknown]
  - Product use in unapproved indication [Unknown]
  - Visual impairment [Unknown]
  - Off label use [Unknown]
